FAERS Safety Report 10390489 (Version 1)
Quarter: 2014Q3

REPORT INFORMATION
  Report Type: Spontaneous
  Country: US (occurrence: None)
  Receive Date: 20140814
  Receipt Date: 20140814
  Transmission Date: 20150326
  Serious: Yes (Hospitalization, Other)
  Sender: FDA-Public Use
  Company Number: 2014-US-008697

PATIENT
  Age: 40 Year
  Sex: Female
  Weight: 78.5 kg

DRUGS (5)
  1. ABILIFY [Concomitant]
     Active Substance: ARIPIPRAZOLE
  2. XYREM [Suspect]
     Active Substance: SODIUM OXYBATE
     Indication: NARCOLEPSY
     Route: 048
     Dates: start: 20140708, end: 20140708
  3. COUMADIN [Concomitant]
     Active Substance: WARFARIN SODIUM
  4. WELLBUTRIN [Concomitant]
     Active Substance: BUPROPION HYDROCHLORIDE
  5. CARDIZEM (DILTIAZEM HYDROCHLORIDE) [Concomitant]

REACTIONS (8)
  - Feeling jittery [None]
  - Diarrhoea [None]
  - Ulcer haemorrhage [None]
  - Blood pressure increased [None]
  - Enuresis [None]
  - Anxiety [None]
  - Weight decreased [None]
  - Nervousness [None]

NARRATIVE: CASE EVENT DATE: 20140708
